FAERS Safety Report 16528908 (Version 4)
Quarter: 2019Q3

REPORT INFORMATION
  Report Type: Spontaneous
  Country: CA (occurrence: CA)
  Receive Date: 20190703
  Receipt Date: 20190830
  Transmission Date: 20191004
  Serious: Yes (Life-Threatening, Hospitalization)
  Sender: FDA-Public Use
  Company Number: PHHY2019CA149824

PATIENT
  Age: 65 Year
  Sex: Male

DRUGS (9)
  1. PREDNISONE. [Suspect]
     Active Substance: PREDNISONE
     Indication: RENAL TRANSPLANT
     Dosage: 5 MG, Q48H
     Route: 065
  2. VANCOMYCIN [Concomitant]
     Active Substance: VANCOMYCIN
     Indication: PRODUCT USED FOR UNKNOWN INDICATION
     Dosage: UNK
     Route: 065
  3. AZATHIOPRINE. [Suspect]
     Active Substance: AZATHIOPRINE
     Indication: RENAL TRANSPLANT
     Dosage: 30 MG, QD
     Route: 065
  4. CLOBETOL [Concomitant]
     Indication: DERMATITIS ALLERGIC
     Dosage: UNK
     Route: 065
  5. CEPHALEXIN. [Concomitant]
     Active Substance: CEPHALEXIN
     Indication: CELLULITIS
     Dosage: UNK
     Route: 065
  6. AZATHIOPRINE. [Suspect]
     Active Substance: AZATHIOPRINE
     Indication: IMMUNOSUPPRESSANT DRUG THERAPY
  7. CICLOSPORIN [Suspect]
     Active Substance: CYCLOSPORINE
     Indication: IMMUNOSUPPRESSANT DRUG THERAPY
  8. CICLOSPORIN [Suspect]
     Active Substance: CYCLOSPORINE
     Indication: RENAL TRANSPLANT
     Dosage: 75 MG, BID
     Route: 065
  9. PREDNISONE. [Suspect]
     Active Substance: PREDNISONE
     Indication: IMMUNOSUPPRESSANT DRUG THERAPY

REACTIONS (16)
  - Hypotension [Unknown]
  - Rash erythematous [Recovered/Resolved]
  - Rash papular [Unknown]
  - Acarodermatitis [Recovered/Resolved]
  - Bacteraemia [Unknown]
  - Respiratory failure [Unknown]
  - Pleural effusion [Unknown]
  - Rash pruritic [Unknown]
  - Leukocytosis [Unknown]
  - Enterococcal bacteraemia [Unknown]
  - Acute respiratory distress syndrome [Unknown]
  - Disease recurrence [Unknown]
  - Staphylococcal bacteraemia [Unknown]
  - Pneumonia [Unknown]
  - Pyrexia [Unknown]
  - Product use in unapproved indication [Unknown]
